FAERS Safety Report 17312414 (Version 1)
Quarter: 2020Q1

REPORT INFORMATION
  Report Type: Spontaneous
  Country: US (occurrence: US)
  Receive Date: 20200123
  Receipt Date: 20200123
  Transmission Date: 20200409
  Serious: Yes (Hospitalization)
  Sender: FDA-Public Use
  Company Number: US-NOVOPROD-670967

PATIENT
  Age: 58 Year
  Sex: Female

DRUGS (3)
  1. OZEMPIC [Suspect]
     Active Substance: SEMAGLUTIDE
     Dosage: 1 MG, QD (TWO 0.5 MG DOSES QD)
     Route: 058
  2. OZEMPIC [Suspect]
     Active Substance: SEMAGLUTIDE
     Indication: PRODUCT USED FOR UNKNOWN INDICATION
     Dosage: UNK
     Route: 058
  3. ASPIRIN (E.C.) [Concomitant]
     Active Substance: ASPIRIN
     Indication: PRODUCT USED FOR UNKNOWN INDICATION
     Dosage: UNK

REACTIONS (4)
  - Flatulence [Recovering/Resolving]
  - Vomiting [Recovering/Resolving]
  - Constipation [Recovering/Resolving]
  - Off label use [Not Recovered/Not Resolved]

NARRATIVE: CASE EVENT DATE: 20190623
